FAERS Safety Report 4431449-9 (Version None)
Quarter: 2004Q3

REPORT INFORMATION
  Report Type: 
  Country: None (occurrence: None)
  Receive Date: 20040820
  Receipt Date: 20040820
  Transmission Date: 20050211
  Serious: No
  Sender: FDA-Public Use
  Company Number: None

PATIENT
  Sex: Male
  Weight: 158.759 kg

DRUGS (14)
  1. REMICADE [Suspect]
     Indication: POLYARTHRITIS
     Dosage: 1159 MG Q 6 WEEKS INTRAVENOUS
     Route: 042
     Dates: start: 20031223, end: 20040818
  2. ACCUPRIL [Concomitant]
  3. COREG [Concomitant]
  4. COUMADIN [Concomitant]
  5. GLUCOPHAGE [Concomitant]
  6. SYNTHROID [Concomitant]
  7. LANOXIN [Concomitant]
  8. ALLOPURINOL [Concomitant]
  9. MAXIDE 75/50 [Concomitant]
  10. POTASSIUM [Concomitant]
  11. BEXTRA [Concomitant]
  12. AREVA [Concomitant]
  13. LASIX [Concomitant]
  14. HYDROCODONE [Concomitant]

REACTIONS (7)
  - BLOOD PRESSURE SYSTOLIC INCREASED [None]
  - BODY TEMPERATURE DECREASED [None]
  - CHILLS [None]
  - CYANOSIS [None]
  - INFUSION RELATED REACTION [None]
  - PAIN [None]
  - PALLOR [None]
